FAERS Safety Report 5748771-6 (Version None)
Quarter: 2008Q2

REPORT INFORMATION
  Report Type: 
  Country: None (occurrence: None)
  Receive Date: 20080521
  Receipt Date: 20080514
  Transmission Date: 20081010
  Serious: Yes (Hospitalization)
  Sender: FDA-Public Use
  Company Number: 2007-01281

PATIENT
  Age: 57 Year
  Sex: Male

DRUGS (5)
  1. VELCADE [Suspect]
     Indication: MULTIPLE MYELOMA
  2. DEXAMETHASONE TAB [Suspect]
     Indication: MULTIPLE MYELOMA
     Dosage: 40.00 MG, ORAL
     Route: 048
     Dates: start: 20070312, end: 20070316
  3. CISPLATIN [Suspect]
     Indication: MULTIPLE MYELOMA
     Dosage: 15.00 MG/M2, INTRAVENOUS
     Route: 042
     Dates: start: 20070312, end: 20070316
  4. ETOPOSIDE [Suspect]
     Indication: MULTIPLE MYELOMA
     Dosage: 40.00 MG/M2, INTRAVENOUS
     Route: 042
     Dates: start: 20070312, end: 20070316
  5. CYCLOPHOSPHAMIDE [Suspect]
     Indication: MULTIPLE MYELOMA
     Dosage: 400 MG/M2, INTRAVENOUS
     Route: 042
     Dates: start: 20070312, end: 20070316

REACTIONS (1)
  - FEBRILE BONE MARROW APLASIA [None]
